FAERS Safety Report 12369391 (Version 1)
Quarter: 2016Q2

REPORT INFORMATION
  Report Type: Spontaneous
  Country: KR (occurrence: KR)
  Receive Date: 20160513
  Receipt Date: 20160513
  Transmission Date: 20160815
  Serious: Yes (Other)
  Sender: FDA-Public Use
  Company Number: KR-BAXTER-2016BAX023601

PATIENT
  Age: 65 Year
  Sex: Male

DRUGS (11)
  1. IMIPENEM [Concomitant]
     Active Substance: IMIPENEM
     Indication: URINARY TRACT INFECTION
     Route: 065
  2. VANCOMYCIN [Suspect]
     Active Substance: VANCOMYCIN
     Route: 048
  3. BAXTER METRONIDAZOLE INJ. 500MG [Suspect]
     Active Substance: METRONIDAZOLE
     Indication: CLOSTRIDIUM DIFFICILE INFECTION
     Route: 042
  4. TEICOPLANIN [Concomitant]
     Active Substance: TEICOPLANIN
     Indication: PARASPINAL ABSCESS
  5. IMIPENEM [Concomitant]
     Active Substance: IMIPENEM
     Indication: BACTERAEMIA
  6. VANCOMYCIN [Suspect]
     Active Substance: VANCOMYCIN
     Indication: CLOSTRIDIUM DIFFICILE INFECTION
     Route: 048
  7. PENICILLIN-G [Concomitant]
     Active Substance: PENICILLIN G
     Indication: STREPTOCOCCAL INFECTION
     Dosage: 4 MILLION UNITS
     Route: 065
  8. METRONIDAZOLE. [Suspect]
     Active Substance: METRONIDAZOLE
     Indication: CLOSTRIDIUM DIFFICILE INFECTION
     Route: 048
  9. CEFTRIAXONE. [Concomitant]
     Active Substance: CEFTRIAXONE
     Indication: PARASPINAL ABSCESS
  10. TEICOPLANIN [Concomitant]
     Active Substance: TEICOPLANIN
     Indication: EVIDENCE BASED TREATMENT
  11. VANCOMYCIN [Suspect]
     Active Substance: VANCOMYCIN
     Route: 054

REACTIONS (1)
  - No therapeutic response [Recovered/Resolved]
